FAERS Safety Report 11756707 (Version 1)
Quarter: 2015Q4

REPORT INFORMATION
  Report Type: Spontaneous
  Country: US (occurrence: US)
  Receive Date: 20151120
  Receipt Date: 20151120
  Transmission Date: 20160304
  Serious: No
  Sender: FDA-Public Use
  Company Number: US-TEVA-548093USA

PATIENT

DRUGS (1)
  1. DIAZEPAM. [Suspect]
     Active Substance: DIAZEPAM
     Indication: ANXIETY

REACTIONS (7)
  - Vertigo [Unknown]
  - Hyperhidrosis [Unknown]
  - Discomfort [Unknown]
  - Cold sweat [Unknown]
  - Feeling cold [Unknown]
  - Disorientation [Unknown]
  - Malaise [Unknown]
